FAERS Safety Report 18799435 (Version 1)
Quarter: 2021Q1

REPORT INFORMATION
  Report Type: Spontaneous
  Country: US (occurrence: US)
  Receive Date: 20210127
  Receipt Date: 20210127
  Transmission Date: 20210419
  Serious: No
  Sender: FDA-Public Use
  Company Number: None

PATIENT
  Age: 63 Year
  Sex: Male

DRUGS (1)
  1. BOTOX [Suspect]
     Active Substance: ONABOTULINUMTOXINA
     Dosage: ?          OTHER STRENGTH:100 UNIT;OTHER DOSE:200 UNITS;?
     Route: 030
     Dates: start: 201911

REACTIONS (2)
  - Oropharyngeal pain [None]
  - Sinus congestion [None]

NARRATIVE: CASE EVENT DATE: 20210127
